FAERS Safety Report 14028223 (Version 1)
Quarter: 2017Q4

REPORT INFORMATION
  Report Type: Spontaneous
  Country: US (occurrence: US)
  Receive Date: 20171001
  Receipt Date: 20171001
  Transmission Date: 20180321
  Serious: Yes (Other)
  Sender: FDA-Public Use
  Company Number: None

PATIENT
  Age: 50 Year
  Sex: Male
  Weight: 69.75 kg

DRUGS (3)
  1. VITAFUSION MEN^S MULTIVITAMIN GUMMY [Concomitant]
  2. BYSTOLIC [Suspect]
     Active Substance: NEBIVOLOL HYDROCHLORIDE
     Indication: HYPERTENSION
     Dosage: ?          QUANTITY:30 TABLET(S);?
     Route: 048
     Dates: start: 20170810, end: 20170810
  3. FLUOCINOLONE ACETONIDE. [Concomitant]
     Active Substance: FLUOCINOLONE ACETONIDE

REACTIONS (6)
  - Chest discomfort [None]
  - Feeling cold [None]
  - Fatigue [None]
  - Tremor [None]
  - Muscle tightness [None]
  - Flushing [None]

NARRATIVE: CASE EVENT DATE: 20170810
